FAERS Safety Report 12273346 (Version 1)
Quarter: 2016Q2

REPORT INFORMATION
  Report Type: Spontaneous
  Country: AU (occurrence: AU)
  Receive Date: 20160415
  Receipt Date: 20160415
  Transmission Date: 20160815
  Serious: Yes (Other)
  Sender: FDA-Public Use
  Company Number: AU-BRISTOL-MYERS SQUIBB COMPANY-BMS-2016-026800

PATIENT
  Age: 67 Year
  Sex: Male

DRUGS (1)
  1. OPDIVO [Suspect]
     Active Substance: NIVOLUMAB
     Indication: NON-SMALL CELL LUNG CANCER
     Dosage: NOT AVAILABLE
     Route: 042
     Dates: start: 2015, end: 201603

REACTIONS (4)
  - Headache [Unknown]
  - Confusional state [Unknown]
  - Seizure [Unknown]
  - Inflammation [Unknown]
